FAERS Safety Report 9046311 (Version 1)
Quarter: 2013Q1

REPORT INFORMATION
  Report Type: Spontaneous
  Country: US (occurrence: None)
  Receive Date: 20130128
  Receipt Date: 20130128
  Transmission Date: 20140127
  Serious: No
  Sender: FDA-Public Use
  Company Number: None

PATIENT
  Age: 30 Year
  Sex: Male

DRUGS (1)
  1. BUPROPION [Suspect]
     Route: 048
     Dates: start: 20121031, end: 20121128

REACTIONS (3)
  - Asthenia [None]
  - Speech disorder [None]
  - Seizure like phenomena [None]
